FAERS Safety Report 9351718 (Version 1)
Quarter: 2013Q2

REPORT INFORMATION
  Report Type: Report from Study
  Country: DE (occurrence: DE)
  Receive Date: 20130617
  Receipt Date: 20130617
  Transmission Date: 20140414
  Serious: Yes (Other)
  Sender: FDA-Public Use
  Company Number: DE-BIOGENIDEC-2012BI040476

PATIENT
  Age: 29 Year
  Sex: Female

DRUGS (2)
  1. TYSABRI [Suspect]
     Indication: MULTIPLE SCLEROSIS
     Route: 042
     Dates: start: 20091014, end: 20120702
  2. TYSABRI [Suspect]
     Indication: MULTIPLE SCLEROSIS

REACTIONS (2)
  - HELLP syndrome [Unknown]
  - Twin pregnancy [Recovered/Resolved]
